FAERS Safety Report 9504094 (Version 1)
Quarter: 2013Q1

REPORT INFORMATION
  Report Type: Spontaneous
  Country: US (occurrence: None)
  Receive Date: 20130225
  Receipt Date: 20130225
  Transmission Date: 20140127
  Serious: No
  Sender: FDA-Public Use
  Company Number: 363762

PATIENT
  Age: 67 Year
  Sex: Female

DRUGS (2)
  1. VICTOZA (LIRAGLUTIDE) SOLUTION FOR INJECTION, 6MG/ML [Suspect]
     Indication: TYPE 2 DIABETES MELLITUS
     Dosage: , SUBCUTANEUS
     Route: 058
     Dates: start: 2011
  2. METFORMIN (METFORMIN) [Concomitant]

REACTIONS (6)
  - Dizziness [None]
  - Dysgeusia [None]
  - Feeling abnormal [None]
  - Abdominal pain upper [None]
  - Nausea [None]
  - Blood glucose increased [None]
